FAERS Safety Report 5986130-1 (Version None)
Quarter: 2008Q4

REPORT INFORMATION
  Report Type: 
  Country: None (occurrence: None)
  Receive Date: 20081205
  Receipt Date: 20081205
  Transmission Date: 20090506
  Serious: Yes (Death)
  Sender: FDA-Public Use
  Company Number: None

PATIENT
  Sex: Female
  Weight: 68.0396 kg

DRUGS (2)
  1. DROPERIDOL [Suspect]
     Indication: ANXIETY
     Dosage: 2.5 MG 1 IM
     Route: 030
     Dates: start: 20060925, end: 20060925
  2. DROPERIDOL [Suspect]
     Indication: SLEEP DISORDER
     Dosage: 2.5 MG 1 IM
     Route: 030
     Dates: start: 20060925, end: 20060925

REACTIONS (5)
  - CYANOSIS [None]
  - FALL [None]
  - SEDATION [None]
  - SKIN WARM [None]
  - VITAL FUNCTIONS ABNORMAL [None]
